FAERS Safety Report 4290268-7 (Version None)
Quarter: 2004Q1

REPORT INFORMATION
  Report Type: 
  Country: None (occurrence: None)
  Receive Date: 20040126
  Receipt Date: 20031106
  Transmission Date: 20041129
  Serious: No
  Sender: FDA-Public Use
  Company Number: USA030435165

PATIENT
  Age: 80 Year
  Sex: Female
  Weight: 42 kg

DRUGS (4)
  1. FORTEO [Suspect]
     Indication: OSTEOPOROSIS
     Dosage: 20 UG/DAY
     Dates: start: 20030401
  2. INDERAL [Concomitant]
  3. MULTI-VITAMINS [Concomitant]
  4. XANAX [Concomitant]

REACTIONS (14)
  - ASTHENIA [None]
  - BLOOD PRESSURE INCREASED [None]
  - DIARRHOEA [None]
  - DIZZINESS [None]
  - FATIGUE [None]
  - HEART RATE INCREASED [None]
  - NAUSEA [None]
  - NERVOUSNESS [None]
  - PAIN [None]
  - PAIN IN EXTREMITY [None]
  - RIB FRACTURE [None]
  - SKIN TIGHTNESS [None]
  - VERTIGO [None]
  - VOMITING [None]
